FAERS Safety Report 9252970 (Version 2)
Quarter: 2013Q2

REPORT INFORMATION
  Report Type: Report from Study
  Country: FR (occurrence: FR)
  Receive Date: 20130424
  Receipt Date: 20130605
  Transmission Date: 20140414
  Serious: Yes (Hospitalization, Other)
  Sender: FDA-Public Use
  Company Number: FR-GENZYME-CAMP-1002862

PATIENT
  Age: 70 Year
  Sex: Female

DRUGS (7)
  1. CAMPATH [Suspect]
     Indication: CHRONIC LYMPHOCYTIC LEUKAEMIA
     Dosage: 30 MG/ML, 3X/W
     Route: 058
     Dates: start: 20120312, end: 20130106
  2. CAMPATH [Suspect]
     Dosage: 30 MG/ML, 3X/W
     Route: 058
     Dates: start: 20130121, end: 20130217
  3. CAMPATH [Suspect]
     Dosage: 30 MG/ML, 3X/W
     Route: 058
     Dates: start: 20130318, end: 20130327
  4. GRANOCYTE 34 [Concomitant]
     Indication: NEUTROPENIA
     Dosage: 1 DF, QD
     Route: 065
     Dates: start: 20130107, end: 20130118
  5. ROCEPHIN [Concomitant]
     Indication: NEUTROPENIA
     Dosage: 2 INJECTIONS PER DAY
     Route: 065
     Dates: start: 20130107, end: 20130114
  6. TRANSFUSION [Concomitant]
     Indication: ANAEMIA
     Dosage: 2 PACKED RED BLOOD CELLS (PRBC), QD
     Route: 065
     Dates: start: 20130111, end: 20130111
  7. BACTRIM [Concomitant]
     Indication: ANTIFUNGAL PROPHYLAXIS
     Dosage: 3X/ WEEK
     Route: 065
     Dates: start: 20130312

REACTIONS (3)
  - Non-Hodgkin^s lymphoma [Unknown]
  - Neutropenia [Recovered/Resolved]
  - Cytomegalovirus infection [Recovered/Resolved]
